FAERS Safety Report 9936988 (Version 1)
Quarter: 2014Q1

REPORT INFORMATION
  Report Type: Spontaneous
  Country: US (occurrence: None)
  Receive Date: 20140115
  Receipt Date: 20140115
  Transmission Date: 20141002
  Serious: No
  Sender: FDA-Public Use
  Company Number: 2013US002545

PATIENT
  Age: 61 Year
  Sex: Female
  Weight: 63 kg

DRUGS (7)
  1. ICLUSIG (PONATINIB) [Suspect]
     Indication: CHRONIC MYELOID LEUKAEMIA
     Route: 048
     Dates: start: 20130311
  2. MIRALAX (MACROGOL) [Concomitant]
  3. STOOL SOFTENER (DOCUSATE SODIUM) [Concomitant]
  4. CARVEDILOL (CARVEDILOL) [Concomitant]
  5. MELOXICAM (MELOXICAM) [Concomitant]
  6. LISINOPRIL (LISINOPRIL) [Concomitant]
  7. TRAMADOL (TRAMADOL) [Concomitant]

REACTIONS (2)
  - White blood cell count increased [None]
  - Platelet count decreased [None]
